FAERS Safety Report 4901908-0 (Version None)
Quarter: 2006Q1

REPORT INFORMATION
  Report Type: 
  Country: None (occurrence: None)
  Receive Date: 20060206
  Receipt Date: 20060124
  Transmission Date: 20060701
  Serious: Yes (Other)
  Sender: FDA-Public Use
  Company Number: US-JNJFOC-20060105701

PATIENT
  Sex: Female
  Weight: 30.84 kg

DRUGS (2)
  1. CONCERTA [Suspect]
     Route: 048
  2. CONCERTA [Suspect]
     Route: 048

REACTIONS (5)
  - ANOREXIA [None]
  - BREATH ODOUR [None]
  - FUNGAL INFECTION [None]
  - HEADACHE [None]
  - WEIGHT DECREASED [None]
